FAERS Safety Report 7880589-0 (Version None)
Quarter: 2011Q4

REPORT INFORMATION
  Report Type: 
  Country: None (occurrence: None)
  Receive Date: 20111101
  Receipt Date: 20100825
  Transmission Date: 20120403
  Serious: No
  Sender: FDA-Public Use
  Company Number: US-BAYER-201031976NA

PATIENT
  Age: 36 Year
  Sex: Female
  Weight: 57.727 kg

DRUGS (5)
  1. ULTRAVIST 300 [Suspect]
     Indication: COMPUTERISED TOMOGRAM ABDOMEN
  2. ULTRAVIST 300 [Suspect]
     Indication: FLANK PAIN
     Dosage: INTO RIGHT ANTECUBITAL USING POWER INJECTOR AT A RATE OF 3.0 ML/SEC WITH WARMER
     Route: 042
     Dates: start: 20100825, end: 20100825
  3. BARIUM SULFATE [Concomitant]
     Indication: COMPUTERISED TOMOGRAM
     Dosage: UNK UNK, ONCE
     Route: 048
     Dates: start: 20100825, end: 20100825
  4. ULTRAVIST 300 [Suspect]
     Indication: ABDOMINAL PAIN LOWER
  5. PULMICORT [Concomitant]

REACTIONS (3)
  - ANXIETY [None]
  - DIZZINESS [None]
  - DYSPNOEA [None]
